FAERS Safety Report 6890468-3 (Version None)
Quarter: 2010Q3

REPORT INFORMATION
  Report Type: 
  Country: None (occurrence: None)
  Receive Date: 20100731
  Receipt Date: 20081105
  Transmission Date: 20110219
  Serious: No
  Sender: FDA-Public Use
  Company Number: US-PFIZER INC-2008093003

PATIENT
  Sex: Female
  Weight: 62.727 kg

DRUGS (6)
  1. LIPITOR [Suspect]
     Indication: BLOOD CHOLESTEROL INCREASED
  2. ALPRAZOLAM [Suspect]
     Indication: INSOMNIA
  3. ALPRAZOLAM [Suspect]
     Indication: PANIC ATTACK
  4. LOVASTATIN [Suspect]
     Indication: BLOOD CHOLESTEROL INCREASED
     Dates: start: 20080801, end: 20081020
  5. ACETYLSALICYLIC ACID SRT [Concomitant]
  6. VITAMINS [Concomitant]

REACTIONS (4)
  - BLOOD CHOLESTEROL INCREASED [None]
  - MYALGIA [None]
  - PANIC ATTACK [None]
  - SLEEP DISORDER [None]
